FAERS Safety Report 25751815 (Version 1)
Quarter: 2025Q3

REPORT INFORMATION
  Report Type: Spontaneous
  Country: US (occurrence: US)
  Receive Date: 20250902
  Receipt Date: 20250902
  Transmission Date: 20251021
  Serious: Yes (Other)
  Sender: ABBVIE
  Company Number: US-ABBVIE-6436284

PATIENT
  Age: 73 Year
  Sex: Female

DRUGS (1)
  1. ARMOUR THYROID [Suspect]
     Active Substance: THYROID, PORCINE
     Indication: Hypothyroidism
     Route: 048

REACTIONS (5)
  - Systemic lupus erythematosus [Unknown]
  - Abdominal distension [Unknown]
  - Intra-abdominal fluid collection [Unknown]
  - Drug resistance [Unknown]
  - Housebound [Unknown]

NARRATIVE: CASE EVENT DATE: 20250101
